FAERS Safety Report 7216254-2 (Version None)
Quarter: 2011Q1

REPORT INFORMATION
  Report Type: 
  Country: None (occurrence: None)
  Receive Date: 20110107
  Receipt Date: 20101227
  Transmission Date: 20110831
  Serious: Yes (Other)
  Sender: FDA-Public Use
  Company Number: US-BAYER-200925363NA

PATIENT
  Sex: Female

DRUGS (5)
  1. TEGRETOL [Suspect]
     Dates: start: 20090501
  2. BETASERON [Suspect]
     Dosage: 8 MIU, UNK
     Route: 058
     Dates: start: 20090703, end: 20101108
  3. TOPAMAX [Suspect]
     Dates: start: 20090501
  4. KEPPRA [Concomitant]
     Dosage: 1000 MG, BID
     Route: 048
     Dates: end: 20101101
  5. BETASERON [Suspect]
     Indication: MULTIPLE SCLEROSIS RELAPSE
     Dosage: 8 MIU, QOD
     Route: 058
     Dates: start: 20061201, end: 20100430

REACTIONS (5)
  - GRAND MAL CONVULSION [None]
  - MULTIPLE SCLEROSIS RELAPSE [None]
  - VISUAL IMPAIRMENT [None]
  - HALLUCINATION [None]
  - MUSCULOSKELETAL STIFFNESS [None]
